FAERS Safety Report 14726433 (Version 1)
Quarter: 2018Q2

REPORT INFORMATION
  Report Type: Spontaneous
  Country: FI (occurrence: FI)
  Receive Date: 20180406
  Receipt Date: 20180406
  Transmission Date: 20180711
  Serious: Yes (Other)
  Sender: FDA-Public Use
  Company Number: FI-ACCORD-065304

PATIENT
  Age: 37 Year
  Sex: Female

DRUGS (6)
  1. TEMSIROLIMUS [Suspect]
     Active Substance: TEMSIROLIMUS
     Indication: ACUTE MYELOID LEUKAEMIA
  2. CYTARABINE/CYTARABINE HYDROCHLORIDE/CYTARABINE OCFOSFATE [Suspect]
     Active Substance: CYTARABINE
     Indication: ACUTE MYELOID LEUKAEMIA
  3. ETOPOSIDE. [Suspect]
     Active Substance: ETOPOSIDE
     Indication: ACUTE MYELOID LEUKAEMIA
  4. SUNITINIB [Suspect]
     Active Substance: SUNITINIB
     Indication: ACUTE MYELOID LEUKAEMIA
  5. VINBLASTINE [Suspect]
     Active Substance: VINBLASTINE
     Indication: ACUTE MYELOID LEUKAEMIA
  6. SPRYCEL [Suspect]
     Active Substance: DASATINIB
     Indication: ACUTE MYELOID LEUKAEMIA

REACTIONS (3)
  - Malignant neoplasm progression [Unknown]
  - Neutropenic infection [Unknown]
  - Sensory loss [Unknown]
